FAERS Safety Report 25539765 (Version 1)
Quarter: 2025Q3

REPORT INFORMATION
  Report Type: Spontaneous
  Country: CN (occurrence: CN)
  Receive Date: 20250710
  Receipt Date: 20250710
  Transmission Date: 20251021
  Serious: Yes (Death, Other)
  Sender: SANOFI AVENTIS
  Company Number: CN-DialogSolutions-SAAVPROD-PI798024-C1

PATIENT
  Age: 56 Year
  Sex: Male

DRUGS (8)
  1. OXALIPLATIN [Suspect]
     Active Substance: OXALIPLATIN
     Indication: Gastric cancer
     Dosage: 130 MG/M2, Q3W, IVGTT
     Route: 042
     Dates: start: 20210707
  2. OXALIPLATIN [Suspect]
     Active Substance: OXALIPLATIN
     Dosage: 130 MG/M2, Q3W, IVGTT
     Route: 042
     Dates: start: 20210728
  3. SINTILIMAB [Suspect]
     Active Substance: SINTILIMAB
     Indication: Gastric cancer
     Dosage: 0.2 G, Q3W, IVGTT
     Route: 042
     Dates: start: 20210707
  4. SINTILIMAB [Suspect]
     Active Substance: SINTILIMAB
     Dosage: 0.2 G, Q3W, IVGTT
     Route: 042
     Dates: start: 20210728
  5. SINTILIMAB [Suspect]
     Active Substance: SINTILIMAB
     Dosage: 0.2 G, Q3W, IVGTT
     Route: 042
     Dates: start: 20210823
  6. SINTILIMAB [Suspect]
     Active Substance: SINTILIMAB
     Dosage: 0.2 G, Q3W, IVGTT
     Route: 042
     Dates: start: 20210915
  7. GIMERACIL\OTERACIL\TEGAFUR [Suspect]
     Active Substance: GIMERACIL\OTERACIL POTASSIUM\TEGAFUR
     Indication: Gastric cancer
     Dosage: 60 MG, BID
     Route: 048
     Dates: start: 20210707
  8. GIMERACIL\OTERACIL\TEGAFUR [Suspect]
     Active Substance: GIMERACIL\OTERACIL POTASSIUM\TEGAFUR
     Dosage: 60 MG, BID
     Route: 048
     Dates: start: 20210728

REACTIONS (9)
  - Tumour hyperprogression [Fatal]
  - Off label use [Fatal]
  - Abdominal pain upper [Fatal]
  - Back pain [Fatal]
  - Metastases to liver [Fatal]
  - Lymphadenopathy [Fatal]
  - Tumour thrombosis [Fatal]
  - Metastases to muscle [Fatal]
  - Metastases to pelvis [Fatal]

NARRATIVE: CASE EVENT DATE: 20210101
